FAERS Safety Report 22016116 (Version 2)
Quarter: 2023Q4

REPORT INFORMATION
  Report Type: Report from Study
  Country: CA (occurrence: CA)
  Receive Date: 20230221
  Receipt Date: 20231101
  Transmission Date: 20240110
  Serious: Yes (Death, Other)
  Sender: FDA-Public Use
  Company Number: CA-drreddys-CLI/CAN/23/0161097

PATIENT
  Age: 66 Year
  Sex: Male

DRUGS (1)
  1. AZACITIDINE [Suspect]
     Active Substance: AZACITIDINE
     Indication: Myelodysplastic syndrome
     Dosage: 75MG/M2 FOR 7 DAYS EVERY 28 DAYS
     Route: 065
     Dates: start: 20211011

REACTIONS (1)
  - Death [Fatal]
